FAERS Safety Report 10172839 (Version 3)
Quarter: 2014Q4

REPORT INFORMATION
  Report Type: Spontaneous
  Country: US (occurrence: US)
  Receive Date: 20140515
  Receipt Date: 20141105
  Transmission Date: 20150528
  Serious: Yes (Other)
  Sender: FDA-Public Use
  Company Number: US-GLAXOSMITHKLINE-A1073196A

PATIENT

DRUGS (14)
  1. PEPPERMINT. [Concomitant]
     Active Substance: PEPPERMINT
  2. NITROSTAT [Concomitant]
     Active Substance: NITROGLYCERIN
  3. ADVAIR HFA [Suspect]
     Active Substance: FLUTICASONE PROPIONATE\SALMETEROL XINAFOATE
     Indication: ASTHMA
     Dosage: 250/50 MCG, UNK
     Route: 055
     Dates: start: 20140305
  4. LIPITOR [Concomitant]
     Active Substance: ATORVASTATIN CALCIUM
  5. LISINOPRIL HCTZ [Concomitant]
     Active Substance: HYDROCHLOROTHIAZIDE\LISINOPRIL
  6. CYMBALTA [Concomitant]
     Active Substance: DULOXETINE HYDROCHLORIDE
  7. CLONAZEPAM. [Concomitant]
     Active Substance: CLONAZEPAM
  8. PROTON PUMP INHIBITOR [Concomitant]
     Active Substance: UNSPECIFIED INGREDIENT
  9. LIDOCAINE. [Concomitant]
     Active Substance: LIDOCAINE
  10. HYDROCODONE ACETAMINOPHEN [Concomitant]
     Active Substance: ACETAMINOPHEN\HYDROCODONE BITARTRATE
  11. CLONAZEPAM. [Concomitant]
     Active Substance: CLONAZEPAM
  12. ADVAIR HFA [Suspect]
     Active Substance: FLUTICASONE PROPIONATE\SALMETEROL XINAFOATE
     Dosage: 500/50 MCG AT 2 TO 3 PUFFS/2 TO 3 TIMES DAILY
     Route: 055
  13. ASPIRIN. [Concomitant]
     Active Substance: ASPIRIN
  14. HYDROCHLOROTHIAZIDE. [Concomitant]
     Active Substance: HYDROCHLOROTHIAZIDE

REACTIONS (40)
  - Angina unstable [Unknown]
  - Presyncope [Unknown]
  - Chest pain [Unknown]
  - Nervousness [Unknown]
  - Peripheral swelling [Unknown]
  - Gait disturbance [Unknown]
  - Confusional state [Unknown]
  - Muscle spasms [Unknown]
  - Cardiac murmur [Unknown]
  - Cough [Unknown]
  - Speech disorder [Unknown]
  - Dysphagia [Unknown]
  - Loss of consciousness [Unknown]
  - Catheterisation cardiac [Recovered/Resolved]
  - Chills [Unknown]
  - Increased tendency to bruise [Unknown]
  - Dehydration [Unknown]
  - Memory impairment [Unknown]
  - Chest discomfort [Unknown]
  - Dizziness [Unknown]
  - Visual impairment [Unknown]
  - Night sweats [Unknown]
  - Dyspnoea [Unknown]
  - Hypotension [Unknown]
  - Hyperhidrosis [Unknown]
  - Pain in extremity [Unknown]
  - Wheezing [Unknown]
  - Pollakiuria [Unknown]
  - Gastrooesophageal reflux disease [Unknown]
  - Blood pressure decreased [Unknown]
  - Syncope [Unknown]
  - Dyspnoea exertional [Unknown]
  - Oesophagitis [Unknown]
  - Fall [Unknown]
  - Fatigue [Unknown]
  - Dizziness [Unknown]
  - Diarrhoea [Unknown]
  - Skin discolouration [Unknown]
  - Stress [Unknown]
  - Myalgia [Unknown]

NARRATIVE: CASE EVENT DATE: 2014
